FAERS Safety Report 5772571-4 (Version None)
Quarter: 2008Q2

REPORT INFORMATION
  Report Type: 
  Country: None (occurrence: None)
  Receive Date: 20080601
  Receipt Date: 20080303
  Transmission Date: 20081010
  Serious: No
  Sender: FDA-Public Use
  Company Number: US200803000558

PATIENT
  Age: 64 Year
  Sex: Female
  Weight: 80.7 kg

DRUGS (7)
  1. BYETTA [Suspect]
     Indication: TYPE 2 DIABETES MELLITUS
     Dosage: 5 UG, 2/D, SUBCUTANEOUS ; 10 UG, 2/D, SUBCUTANEOUS ; 5 UG, AS NEEDED, SUBCUTANEOUS
     Route: 058
     Dates: start: 20050601, end: 20050701
  2. BYETTA [Suspect]
     Indication: TYPE 2 DIABETES MELLITUS
     Dosage: 5 UG, 2/D, SUBCUTANEOUS ; 10 UG, 2/D, SUBCUTANEOUS ; 5 UG, AS NEEDED, SUBCUTANEOUS
     Route: 058
     Dates: start: 20050701
  3. ACTOS /USA/ (PIOGLITAZONE HYDROCHLORIDE) [Concomitant]
  4. TRICOR [Concomitant]
  5. LIPITOR [Concomitant]
  6. DHEA (PRASTERONE) [Concomitant]
  7. FOLIC ACID [Concomitant]

REACTIONS (7)
  - BLOOD GLUCOSE DECREASED [None]
  - CATARACT [None]
  - DIPLOPIA [None]
  - FEELING COLD [None]
  - SOMNOLENCE [None]
  - STOMACH DISCOMFORT [None]
  - WEIGHT DECREASED [None]
